FAERS Safety Report 16980288 (Version 1)
Quarter: 2019Q4

REPORT INFORMATION
  Report Type: Report from Study
  Country: EG (occurrence: EG)
  Receive Date: 20191031
  Receipt Date: 20191031
  Transmission Date: 20200122
  Serious: Yes (Life-Threatening, Other)
  Sender: FDA-Public Use
  Company Number: NVSC2019EG019482

PATIENT
  Age: 53 Year
  Sex: Female

DRUGS (5)
  1. KISQALI [Suspect]
     Active Substance: RIBOCICLIB
     Indication: METASTASES TO LYMPH NODES
  2. APIDONE [Concomitant]
     Indication: PRODUCT USED FOR UNKNOWN INDICATION
     Dosage: UNK
     Route: 065
  3. FASLODEX [Concomitant]
     Active Substance: FULVESTRANT
     Indication: PRODUCT USED FOR UNKNOWN INDICATION
     Dosage: 1 DF, Q4W
     Route: 065
     Dates: start: 201901
  4. KISQALI [Suspect]
     Active Substance: RIBOCICLIB
     Indication: BREAST CANCER METASTATIC
     Dosage: 600 MG, QD
     Route: 065
     Dates: start: 201901, end: 201907
  5. ZOLADEX [Concomitant]
     Active Substance: GOSERELIN ACETATE
     Indication: PRODUCT USED FOR UNKNOWN INDICATION
     Dosage: 1 DF, Q3W (TAKING SINCE UNKNOWN DATE IN MARCH, YEAR UNKNOWN)
     Route: 065

REACTIONS (12)
  - General physical health deterioration [Recovering/Resolving]
  - Decreased appetite [Recovering/Resolving]
  - Metastases to lymph nodes [Recovering/Resolving]
  - Weight decreased [Recovering/Resolving]
  - Breast cancer metastatic [Recovering/Resolving]
  - Asthenia [Recovering/Resolving]
  - Hypotension [Recovering/Resolving]
  - Toothache [Recovered/Resolved]
  - Vision blurred [Recovering/Resolving]
  - Haemoglobin decreased [Recovering/Resolving]
  - Malignant neoplasm progression [Recovering/Resolving]
  - Drug ineffective [Recovering/Resolving]

NARRATIVE: CASE EVENT DATE: 201903
